FAERS Safety Report 7260878-3 (Version None)
Quarter: 2011Q1

REPORT INFORMATION
  Report Type: 
  Country: None (occurrence: None)
  Receive Date: 20110130
  Receipt Date: 20101227
  Transmission Date: 20110831
  Serious: No
  Sender: FDA-Public Use
  Company Number: US-ABBOTT-10P-163-0693727-00

PATIENT
  Age: 46 Year
  Sex: Female

DRUGS (5)
  1. HUMIRA [Suspect]
     Indication: CROHN'S DISEASE
  2. MICARDIS HCT [Concomitant]
     Indication: HYPERTENSION
     Dosage: 80/25MG
  3. LEVOTHYROXINE SODIUM [Concomitant]
     Indication: THYROID DISORDER
  4. ASACOL [Concomitant]
     Indication: CROHN'S DISEASE
  5. DOXAZOSIN MESYL [Concomitant]
     Indication: HYPERTENSION

REACTIONS (5)
  - COUGH [None]
  - DYSPHONIA [None]
  - UPPER RESPIRATORY TRACT CONGESTION [None]
  - NASOPHARYNGITIS [None]
  - NASAL CONGESTION [None]
